FAERS Safety Report 8910220 (Version 2)
Quarter: 2014Q1

REPORT INFORMATION
  Report Type: Spontaneous
  Country: US (occurrence: US)
  Receive Date: 20121114
  Receipt Date: 20140214
  Transmission Date: 20141002
  Serious: Yes (Death)
  Sender: FDA-Public Use
  Company Number: US-ASTRAZENECA-2012SE84638

PATIENT
  Age: 50 Year
  Sex: Female

DRUGS (3)
  1. SYMBICORT PMDI [Suspect]
     Indication: CHRONIC OBSTRUCTIVE PULMONARY DISEASE
     Dosage: 80/4.5 MCG, UNKNOWN
     Route: 055
  2. PNEUMONIA SHOT [Suspect]
     Route: 065
  3. MANY MEDICATIONS [Concomitant]

REACTIONS (6)
  - Neoplasm malignant [Fatal]
  - Pneumonia [Fatal]
  - Chronic obstructive pulmonary disease [Fatal]
  - Pneumothorax [Fatal]
  - Tachypnoea [Unknown]
  - Malaise [Unknown]
